FAERS Safety Report 9064668 (Version 1)
Quarter: 2013Q1

REPORT INFORMATION
  Report Type: Report from Study
  Country: US (occurrence: US)
  Receive Date: 20130128
  Receipt Date: 20130128
  Transmission Date: 20140127
  Serious: Yes (Hospitalization)
  Sender: FDA-Public Use
  Company Number: PHHY2013US004196

PATIENT
  Sex: Male

DRUGS (7)
  1. MYFORTIC [Suspect]
     Dosage: 720 MG, BID
     Route: 048
  2. ASPIRIN [Concomitant]
     Dosage: 81 MG, QD
     Route: 048
  3. NEORAL [Concomitant]
     Dosage: 100 MG, BID
     Route: 048
  4. NOVOLIN N [Concomitant]
     Dosage: 5 DF, BID BEFORE MEALS
     Route: 058
  5. PRAVACHOL [Concomitant]
     Indication: RENAL TRANSPLANT
     Dosage: 40 MG, QD
     Route: 048
  6. DELTASONE [Concomitant]
     Indication: RENAL TRANSPLANT
     Dosage: 1 DF ORALLY WITH BREAKFAST
     Route: 048
  7. VITAMIN D [Concomitant]
     Indication: RENAL TRANSPLANT
     Dosage: 1 DF ORALLY EVERY WEEK
     Route: 048

REACTIONS (7)
  - Dementia [Unknown]
  - Cognitive disorder [Unknown]
  - Dehydration [Unknown]
  - Dyspnoea [Unknown]
  - Systemic inflammatory response syndrome [Unknown]
  - Mental disorder [Unknown]
  - Confusional state [Unknown]
